FAERS Safety Report 9834228 (Version 2)
Quarter: 2014Q1

REPORT INFORMATION
  Report Type: Report from Study
  Country: ES (occurrence: ES)
  Receive Date: 20140122
  Receipt Date: 20140122
  Transmission Date: 20141002
  Serious: Yes (Hospitalization)
  Sender: FDA-Public Use
  Company Number: ES-US-EMD SERONO, INC.-7250693

PATIENT
  Age: 14 Year
  Sex: Female

DRUGS (5)
  1. SAIZEN [Suspect]
     Indication: TURNER^S SYNDROME
     Dates: start: 201310, end: 201310
  2. SAIZEN [Suspect]
     Dates: start: 201310, end: 201310
  3. SAIZEN [Suspect]
     Dates: end: 20131113
  4. SAIZEN [Suspect]
     Dates: start: 20131114, end: 201312
  5. ENALAPRIL [Concomitant]
     Indication: HYPERTENSION
     Route: 048

REACTIONS (1)
  - Blood pressure increased [Recovered/Resolved]
